FAERS Safety Report 21313923 (Version 1)
Quarter: 2022Q3

REPORT INFORMATION
  Report Type: Report from Study
  Country: US (occurrence: US)
  Receive Date: 20220909
  Receipt Date: 20220909
  Transmission Date: 20221026
  Serious: No
  Sender: FDA-Public Use
  Company Number: US-INCYTE CORPORATION-2022IN008165

PATIENT

DRUGS (1)
  1. JAKAFI [Suspect]
     Active Substance: RUXOLITINIB
     Indication: Platelet count increased
     Dosage: 10 MILLIGRAM, BID
     Route: 065

REACTIONS (3)
  - Oral pain [Recovered/Resolved]
  - Hypoacusis [Unknown]
  - Off label use [Unknown]
